FAERS Safety Report 6111246-9 (Version None)
Quarter: 2009Q1

REPORT INFORMATION
  Report Type: 
  Country: None (occurrence: None)
  Receive Date: 20090311
  Receipt Date: 20090303
  Transmission Date: 20090719
  Serious: Yes (Other)
  Sender: FDA-Public Use
  Company Number: PHHY2008JP22478

PATIENT
  Sex: Male
  Weight: 40 kg

DRUGS (7)
  1. EXJADE [Suspect]
     Indication: IRON OVERLOAD
     Dosage: 750 MG DAILY
     Route: 048
     Dates: start: 20080807, end: 20080904
  2. CYCLOSPORINE [Concomitant]
     Indication: IRON OVERLOAD
     Dosage: 100 MG
     Route: 048
  3. ACINON [Concomitant]
     Dosage: 150 MG
     Route: 048
  4. MUCOSTA [Concomitant]
     Dosage: 200 G
     Route: 048
  5. BAKTAR [Concomitant]
     Dosage: 1 DF
     Route: 048
  6. ADONA [Concomitant]
     Dosage: 90 MG
     Route: 048
  7. LOXONIN [Concomitant]
     Dosage: 120 MG
     Route: 048

REACTIONS (7)
  - ANAEMIA [None]
  - BLOOD UREA INCREASED [None]
  - FAECES DISCOLOURED [None]
  - GASTROINTESTINAL HAEMORRHAGE [None]
  - HAEMATOCRIT DECREASED [None]
  - HAEMOGLOBIN DECREASED [None]
  - RED BLOOD CELL COUNT DECREASED [None]
